FAERS Safety Report 25742113 (Version 1)
Quarter: 2025Q3

REPORT INFORMATION
  Report Type: Spontaneous
  Country: EU (occurrence: EU)
  Receive Date: 20250829
  Receipt Date: 20250829
  Transmission Date: 20251021
  Serious: Yes (Life-Threatening)
  Sender: MYLAN
  Company Number: None

PATIENT
  Age: 72 Year
  Sex: Male

DRUGS (5)
  1. AMLODIPINE [Suspect]
     Active Substance: AMLODIPINE BESYLATE
     Indication: Myocardial infarction
     Dosage: 5 MILLIGRAM, QD
     Dates: end: 20250726
  2. NEBIVOLOL [Suspect]
     Active Substance: NEBIVOLOL
     Indication: Atrial fibrillation
     Dosage: 5 MILLIGRAM, QD
     Dates: end: 20250726
  3. FUROSEMIDE [Suspect]
     Active Substance: FUROSEMIDE
     Indication: Diabetic nephropathy
     Dosage: 40 MILLIGRAM, QD
     Dates: end: 20250726
  4. RAMIPRIL [Suspect]
     Active Substance: RAMIPRIL
     Indication: Myocardial infarction
     Dosage: 10 MILLIGRAM, QD
     Dates: end: 20250726
  5. DAPAGLIFLOZIN [Suspect]
     Active Substance: DAPAGLIFLOZIN
     Indication: Type 2 diabetes mellitus
     Dosage: 1 DOSAGE FORM, QD
     Dates: end: 20250726

REACTIONS (1)
  - Hypovolaemic shock [Recovered/Resolved]

NARRATIVE: CASE EVENT DATE: 20250726
